FAERS Safety Report 13394209 (Version 1)
Quarter: 2017Q2

REPORT INFORMATION
  Report Type: Spontaneous
  Country: US (occurrence: US)
  Receive Date: 20170401
  Receipt Date: 20170401
  Transmission Date: 20170830
  Serious: Yes (Other)
  Sender: FDA-Public Use
  Company Number: US-GE HEALTHCARE LIFE SCIENCES-2017CSU000614

PATIENT
  Sex: Male

DRUGS (1)
  1. OMNISCAN [Suspect]
     Active Substance: GADODIAMIDE
     Indication: PRODUCT USED FOR UNKNOWN INDICATION
     Dosage: TWO DOSES TOTALING 46 CC
     Route: 042

REACTIONS (2)
  - Nephrogenic systemic fibrosis [Not Recovered/Not Resolved]
  - Drug clearance decreased [Not Recovered/Not Resolved]
